FAERS Safety Report 21538137 (Version 2)
Quarter: 2022Q4

REPORT INFORMATION
  Report Type: Report from Study
  Country: CA (occurrence: CA)
  Receive Date: 20221101
  Receipt Date: 20221107
  Transmission Date: 20230112
  Serious: Yes (Hospitalization)
  Sender: FDA-Public Use
  Company Number: CA-ABBVIE-4168100

PATIENT
  Age: 61 Year
  Sex: Female

DRUGS (1)
  1. SKYRIZI [Suspect]
     Active Substance: RISANKIZUMAB-RZAA
     Indication: Psoriasis
     Dosage: FORM STRENGHT 75 MILLIGRAM
     Route: 058
     Dates: start: 20200506

REACTIONS (9)
  - Vertigo positional [Unknown]
  - Malaise [Unknown]
  - Vomiting [Unknown]
  - Mobility decreased [Unknown]
  - Headache [Unknown]
  - Dizziness [Unknown]
  - Labyrinthitis [Unknown]
  - Hospitalisation [Unknown]
  - Asthenia [Unknown]

NARRATIVE: CASE EVENT DATE: 20221001
